FAERS Safety Report 7562811-3 (Version None)
Quarter: 2011Q2

REPORT INFORMATION
  Report Type: 
  Country: None (occurrence: None)
  Receive Date: 20110622
  Receipt Date: 20110615
  Transmission Date: 20111010
  Serious: Yes (Other)
  Sender: FDA-Public Use
  Company Number: AR-JNJFOC-20101203173

PATIENT
  Age: 40 Year
  Sex: Female

DRUGS (2)
  1. AMINOGLUTETHIMIDE [Suspect]
     Indication: HYPERCORTICOIDISM
     Route: 065
  2. KETOCONAZOLE [Suspect]
     Indication: HYPERCORTICOIDISM
     Route: 065

REACTIONS (1)
  - DRUG INEFFECTIVE FOR UNAPPROVED INDICATION [None]
